FAERS Safety Report 13709234 (Version 1)
Quarter: 2017Q3

REPORT INFORMATION
  Report Type: Spontaneous
  Country: US (occurrence: US)
  Receive Date: 20170703
  Receipt Date: 20170703
  Transmission Date: 20171127
  Serious: Yes (Other)
  Sender: FDA-Public Use
  Company Number: US-ROCHE-1957657

PATIENT
  Sex: Female

DRUGS (1)
  1. ESBRIET [Suspect]
     Active Substance: PIRFENIDONE
     Indication: IDIOPATHIC PULMONARY FIBROSIS
     Dosage: TAKE 3 CAPSULES BY MOUTH 3 TIMES A DAY
     Route: 048
     Dates: start: 20160809

REACTIONS (2)
  - Cough [Not Recovered/Not Resolved]
  - Rib fracture [Not Recovered/Not Resolved]
